FAERS Safety Report 19030542 (Version 2)
Quarter: 2021Q2

REPORT INFORMATION
  Report Type: Spontaneous
  Country: GB (occurrence: GB)
  Receive Date: 20210319
  Receipt Date: 20210427
  Transmission Date: 20210717
  Serious: Yes (Other)
  Sender: FDA-Public Use
  Company Number: GB-MYLANLABS-2021M1014276

PATIENT
  Age: 84 Year
  Sex: Male
  Weight: 60 kg

DRUGS (5)
  1. IMATINIB. [Suspect]
     Active Substance: IMATINIB MESYLATE
     Dosage: 100 MILLIGRAM, QD
     Route: 065
     Dates: start: 201710, end: 201906
  2. IMATINIB. [Suspect]
     Active Substance: IMATINIB MESYLATE
     Dosage: 200 MILLIGRAM, QD
     Route: 065
     Dates: start: 202001
  3. IMATINIB. [Suspect]
     Active Substance: IMATINIB MESYLATE
     Indication: CHRONIC MYELOID LEUKAEMIA
     Dosage: 400 MILLIGRAM, QD
     Route: 048
     Dates: start: 201607, end: 201611
  4. IMATINIB. [Suspect]
     Active Substance: IMATINIB MESYLATE
     Dosage: 200 MILLIGRAM, QD
     Route: 065
     Dates: start: 201911
  5. IMATINIB. [Suspect]
     Active Substance: IMATINIB MESYLATE
     Dosage: 100 MILLIGRAM
     Route: 065

REACTIONS (2)
  - Pulmonary aplasia [Recovered/Resolved]
  - Pancytopenia [Unknown]

NARRATIVE: CASE EVENT DATE: 201611
